FAERS Safety Report 5958230-3 (Version None)
Quarter: 2008Q4

REPORT INFORMATION
  Report Type: 
  Country: None (occurrence: None)
  Receive Date: 20081117
  Receipt Date: 20081117
  Transmission Date: 20090506
  Serious: No
  Sender: FDA-Public Use
  Company Number: None

PATIENT

DRUGS (1)
  1. CYMBALTA [Suspect]
     Indication: MYALGIA
     Dosage: 20MG 1 A DAY PO
     Route: 048
     Dates: start: 20081101, end: 20081112

REACTIONS (1)
  - MYALGIA [None]
